FAERS Safety Report 7846616-1 (Version None)
Quarter: 2011Q4

REPORT INFORMATION
  Report Type: 
  Country: None (occurrence: None)
  Receive Date: 20111025
  Receipt Date: 20111011
  Transmission Date: 20120403
  Serious: Yes (Other)
  Sender: FDA-Public Use
  Company Number: PHHY2011PL92582

PATIENT
  Age: 62 Year

DRUGS (3)
  1. MYCOPHENOLATE MOFETIL [Suspect]
     Indication: IMMUNOSUPPRESSION
  2. PREDNISONE [Concomitant]
     Indication: IMMUNOSUPPRESSION
  3. TACROLIMUS [Concomitant]
     Indication: IMMUNOSUPPRESSION

REACTIONS (3)
  - AZOTAEMIA [None]
  - NEPHROPATHY [None]
  - DIARRHOEA [None]
